FAERS Safety Report 5524759-5 (Version None)
Quarter: 2007Q4

REPORT INFORMATION
  Report Type: 
  Country: None (occurrence: None)
  Receive Date: 20071123
  Receipt Date: 20071115
  Transmission Date: 20080405
  Serious: Yes (Hospitalization)
  Sender: FDA-Public Use
  Company Number: PHBS2007IT19037

PATIENT
  Age: 73 Year
  Sex: Female

DRUGS (7)
  1. VOLTAREN [Suspect]
     Indication: OSTEOARTHRITIS
     Dosage: 75 MG, ONCE/SINGLE
     Route: 030
     Dates: start: 20071009, end: 20071009
  2. METFORMIN HCL [Concomitant]
     Dosage: 1500 MG, UNK
     Route: 048
  3. QUARK [Concomitant]
     Dosage: 5 MG, UNK
     Route: 048
  4. SOLOSA [Concomitant]
     Dosage: 2 MG, UNK
     Route: 048
  5. ASPIRIN [Concomitant]
     Dosage: 100 MG, UNK
  6. ZYLORIC [Concomitant]
     Dosage: 300 MG, UNK
  7. LIMPIDEX [Concomitant]
     Dosage: 15 MG, UNK
     Route: 048

REACTIONS (3)
  - HYPERSENSITIVITY [None]
  - HYPOTENSION [None]
  - PRURITUS GENERALISED [None]
